FAERS Safety Report 7575300-7 (Version None)
Quarter: 2011Q2

REPORT INFORMATION
  Report Type: 
  Country: None (occurrence: None)
  Receive Date: 20110627
  Receipt Date: 20110616
  Transmission Date: 20111010
  Serious: Yes (Disabling)
  Sender: FDA-Public Use
  Company Number: JP-ASTRAZENECA-2011SE09287

PATIENT
  Age: 75 Year
  Sex: Female
  Weight: 42 kg

DRUGS (2)
  1. IRESSA [Suspect]
     Route: 048
  2. IRESSA [Suspect]
     Indication: LUNG CANCER METASTATIC
     Route: 048
     Dates: start: 20070501

REACTIONS (1)
  - CYSTITIS HAEMORRHAGIC [None]
